FAERS Safety Report 8586247 (Version 5)
Quarter: 2016Q4

REPORT INFORMATION
  Report Type: Spontaneous
  Country: US (occurrence: US)
  Receive Date: 20120530
  Receipt Date: 20161227
  Transmission Date: 20170207
  Serious: Yes (Hospitalization)
  Sender: FDA-Public Use
  Company Number: US-PFIZER INC-2012128959

PATIENT
  Age: 8 Year
  Sex: Male
  Weight: 45 kg

DRUGS (4)
  1. HYDROCORTISONE. [Concomitant]
     Active Substance: HYDROCORTISONE
     Indication: ADRENOGENITAL SYNDROME
     Dosage: 5 MG, 2X/DAY
     Dates: start: 2004
  2. FLORINEF ACETATE [Concomitant]
     Active Substance: FLUDROCORTISONE ACETATE
     Indication: ADRENOGENITAL SYNDROME
     Dosage: 1.25 UG, DAILY
     Dates: start: 2004
  3. GENOTROPIN [Suspect]
     Active Substance: SOMATROPIN
     Indication: ADRENOGENITAL SYNDROME
     Dosage: 2 MG, 1X/DAY
  4. GENOTROPIN [Suspect]
     Active Substance: SOMATROPIN
     Dosage: 3.6 MG, DAILY [ROTATED IN THE THIGHS, HIS BEHIND, AND STOMACH]

REACTIONS (2)
  - Papilloedema [Unknown]
  - Product use issue [Unknown]

NARRATIVE: CASE EVENT DATE: 20120329
